FAERS Safety Report 8914461 (Version 1)
Quarter: 2012Q4

REPORT INFORMATION
  Report Type: 
  Country: FR (occurrence: FR)
  Receive Date: 20121119
  Receipt Date: 20121119
  Transmission Date: 20130627
  Serious: Yes (Other)
  Sender: FDA-Public Use
  Company Number: FR-009507513-1208FRA000641

PATIENT

DRUGS (1)
  1. FOSAVANCE [Suspect]
     Indication: OSTEOPOROSIS

REACTIONS (1)
  - Neoplasm malignant [Unknown]
